FAERS Safety Report 7610572-1 (Version None)
Quarter: 2011Q3

REPORT INFORMATION
  Report Type: 
  Country: None (occurrence: None)
  Receive Date: 20110707
  Receipt Date: 20110623
  Transmission Date: 20111222
  Serious: Yes (Death, Life-Threatening, Other)
  Sender: FDA-Public Use
  Company Number: 2011MA007727

PATIENT
  Age: 60 Year
  Sex: Female

DRUGS (3)
  1. NAPROXEN [Suspect]
     Indication: OVERDOSE
     Dosage: 40
  2. AMLODIPINE [Suspect]
  3. METOPROLOL TARTRATE [Suspect]

REACTIONS (4)
  - BLOOD PH DECREASED [None]
  - HAEMODIALYSIS [None]
  - OVERDOSE [None]
  - HYPOTENSION [None]
